FAERS Safety Report 24913163 (Version 2)
Quarter: 2025Q3

REPORT INFORMATION
  Report Type: Report from Study
  Country: EU (occurrence: EU)
  Receive Date: 20250201
  Receipt Date: 20250701
  Transmission Date: 20251021
  Serious: Yes (Hospitalization)
  Sender: ABBVIE
  Company Number: EU-ABBVIE-6105733

PATIENT
  Age: 33 Year
  Sex: Male
  Weight: 78 kg

DRUGS (4)
  1. RINVOQ [Suspect]
     Active Substance: UPADACITINIB
     Indication: Spondylitis
     Route: 048
     Dates: start: 20240904, end: 20241206
  2. Vigantol [Concomitant]
     Indication: Product used for unknown indication
     Dates: start: 202406
  3. Novalgin [Concomitant]
     Indication: Product used for unknown indication
     Dates: start: 202408
  4. PANTOPRAZOLE SODIUM [Concomitant]
     Active Substance: PANTOPRAZOLE SODIUM
     Indication: Product used for unknown indication
     Dates: start: 202406

REACTIONS (1)
  - Gastrointestinal disorder [Not Recovered/Not Resolved]

NARRATIVE: CASE EVENT DATE: 20240701
